FAERS Safety Report 9589189 (Version 2)
Quarter: 2013Q4

REPORT INFORMATION
  Report Type: Spontaneous
  Country: US (occurrence: US)
  Receive Date: 20131003
  Receipt Date: 20131003
  Transmission Date: 20140711
  Serious: No
  Sender: FDA-Public Use
  Company Number: US-AMGEN-USASP2012063290

PATIENT
  Age: 59 Year
  Sex: Female

DRUGS (4)
  1. ENBREL [Suspect]
     Indication: RHEUMATOID ARTHRITIS
     Dosage: 50 MG, QWK
     Route: 058
     Dates: start: 20120801
  2. MOBIC [Concomitant]
     Dosage: 15 MG, QD
  3. MULTIVITAMINS, PLAIN [Concomitant]
     Dosage: 1 UNK, QD
     Route: 048
  4. FISH OIL [Concomitant]
     Dosage: 1000 MG, SOFTGEL, QD
     Route: 048

REACTIONS (5)
  - Influenza like illness [Not Recovered/Not Resolved]
  - Hypersensitivity [Unknown]
  - Productive cough [Unknown]
  - Eye swelling [Unknown]
  - Nasopharyngitis [Not Recovered/Not Resolved]
